FAERS Safety Report 16701715 (Version 2)
Quarter: 2019Q3

REPORT INFORMATION
  Report Type: Spontaneous
  Country: US (occurrence: US)
  Receive Date: 20190814
  Receipt Date: 20190902
  Transmission Date: 20191004
  Serious: Yes (Death, Hospitalization, Other)
  Sender: FDA-Public Use
  Company Number: US-PFIZER INC-2019344030

PATIENT
  Age: 92 Year
  Sex: Female
  Weight: 63 kg

DRUGS (3)
  1. IBRANCE [Suspect]
     Active Substance: PALBOCICLIB
     Indication: BREAST CANCER METASTATIC
     Dosage: 125 MG, CYCLIC (DAILY PO FOR 21/28 DAYS)
     Route: 048
     Dates: start: 20190326, end: 20190619
  2. ANASTROZOL [Concomitant]
     Active Substance: ANASTROZOLE
     Indication: BREAST CANCER METASTATIC
     Dosage: 1 MG, DAILY
     Route: 048
     Dates: start: 201903, end: 20190619
  3. IBRANCE [Suspect]
     Active Substance: PALBOCICLIB
     Indication: BREAST CANCER FEMALE
     Dosage: UNK, CYCLIC, (21 DAYS ON AND 7 DAYS OFF)
     Dates: start: 201902, end: 2019

REACTIONS (11)
  - Fall [Recovered/Resolved with Sequelae]
  - Decreased appetite [Unknown]
  - Fatigue [Unknown]
  - Hand fracture [Recovered/Resolved with Sequelae]
  - Neoplasm progression [Fatal]
  - Asthenia [Recovered/Resolved with Sequelae]
  - Dysphagia [Unknown]
  - Pain [Unknown]
  - Nausea [Unknown]
  - Presbyoesophagus [Unknown]
  - Wrist fracture [Unknown]

NARRATIVE: CASE EVENT DATE: 2019
